FAERS Safety Report 7584014-9 (Version None)
Quarter: 2011Q2

REPORT INFORMATION
  Report Type: 
  Country: None (occurrence: None)
  Receive Date: 20110630
  Receipt Date: 20110620
  Transmission Date: 20111010
  Serious: Yes (Hospitalization, Other)
  Sender: FDA-Public Use
  Company Number: JP-JNJFOC-20110608493

PATIENT
  Age: 5 Decade
  Sex: Female

DRUGS (4)
  1. TPN [Concomitant]
     Indication: CROHN'S DISEASE
     Route: 065
  2. MESALAMINE [Concomitant]
     Indication: CROHN'S DISEASE
     Route: 065
  3. REMICADE [Suspect]
     Indication: CROHN'S DISEASE
     Route: 042
     Dates: start: 20040101
  4. IMURAN [Suspect]
     Indication: CROHN'S DISEASE
     Route: 048
     Dates: start: 20050101

REACTIONS (1)
  - HERPES ZOSTER [None]
